FAERS Safety Report 17899819 (Version 1)
Quarter: 2020Q2

REPORT INFORMATION
  Report Type: Spontaneous
  Country: US (occurrence: US)
  Receive Date: 20200616
  Receipt Date: 20200616
  Transmission Date: 20200714
  Serious: No
  Sender: FDA-Public Use
  Company Number: US-COVIS PHARMA B.V.-2020COV00078

PATIENT
  Age: 61 Year
  Sex: Female

DRUGS (5)
  1. CEFIXIME. [Suspect]
     Active Substance: CEFIXIME
  2. NEXIUM 24HR [Suspect]
     Active Substance: ESOMEPRAZOLE MAGNESIUM
     Route: 048
  3. PSYLLIUM [Suspect]
     Active Substance: PLANTAGO SEED
  4. OMEPRAZOLE MAGNESIUM. [Suspect]
     Active Substance: OMEPRAZOLE MAGNESIUM
     Route: 048
  5. NEURONTIN [Suspect]
     Active Substance: GABAPENTIN

REACTIONS (1)
  - Drug hypersensitivity [Unknown]
